FAERS Safety Report 10519178 (Version 1)
Quarter: 2014Q4

REPORT INFORMATION
  Report Type: Spontaneous
  Country: US (occurrence: US)
  Receive Date: 20141015
  Receipt Date: 20141015
  Transmission Date: 20150528
  Serious: No
  Sender: FDA-Public Use
  Company Number: US-GLAXOSMITHKLINE-A1077717A

PATIENT
  Age: 60 Year
  Sex: Female

DRUGS (14)
  1. LYRICA [Concomitant]
     Active Substance: PREGABALIN
  2. POTASSIUM [Concomitant]
     Active Substance: POTASSIUM
  3. DICLOFENAC [Concomitant]
     Active Substance: DICLOFENAC
  4. LEVOTHYROXINE [Concomitant]
     Active Substance: LEVOTHYROXINE
  5. LASIX [Concomitant]
     Active Substance: FUROSEMIDE
  6. PROGESTERONE. [Concomitant]
     Active Substance: PROGESTERONE
  7. ANORO ELLIPTA [Suspect]
     Active Substance: UMECLIDINIUM BROMIDE\VILANTEROL TRIFENATATE
     Indication: CHRONIC OBSTRUCTIVE PULMONARY DISEASE
     Route: 055
     Dates: start: 20140603
  8. NORVASC [Concomitant]
     Active Substance: AMLODIPINE BESYLATE
  9. TEMAZEPAM. [Concomitant]
     Active Substance: TEMAZEPAM
  10. ABILIFY [Concomitant]
     Active Substance: ARIPIPRAZOLE
  11. ESTROGEN [Concomitant]
     Active Substance: ESTRONE\SUS SCROFA OVARY
  12. TEMAZEPAM CAPSULE [Suspect]
     Active Substance: TEMAZEPAM
     Indication: SLEEP DISORDER
     Route: 048
  13. ROBAXIN [Concomitant]
     Active Substance: METHOCARBAMOL
  14. GABAPENTIN. [Concomitant]
     Active Substance: GABAPENTIN

REACTIONS (1)
  - Vision blurred [Not Recovered/Not Resolved]

NARRATIVE: CASE EVENT DATE: 20140616
